FAERS Safety Report 6558761-1 (Version None)
Quarter: 2010Q1

REPORT INFORMATION
  Report Type: 
  Country: None (occurrence: None)
  Receive Date: 20100129
  Receipt Date: 20100119
  Transmission Date: 20100710
  Serious: Yes (Other)
  Sender: FDA-Public Use
  Company Number: US-ABBOTT-10P-163-0620418-00

PATIENT
  Sex: Male
  Weight: 122.58 kg

DRUGS (2)
  1. HUMIRA [Suspect]
     Indication: PSORIATIC ARTHROPATHY
     Dates: start: 20070908, end: 20100110
  2. HUMIRA [Suspect]
     Indication: PSORIASIS

REACTIONS (2)
  - DYSPNOEA [None]
  - PULSE PRESSURE INCREASED [None]
